FAERS Safety Report 10078685 (Version 1)
Quarter: 2014Q2

REPORT INFORMATION
  Report Type: Spontaneous
  Country: US (occurrence: US)
  Receive Date: 20140415
  Receipt Date: 20140415
  Transmission Date: 20141212
  Serious: No
  Sender: FDA-Public Use
  Company Number: US-MYLANLABS-2014S1002175

PATIENT
  Age: 32 Year
  Sex: Male
  Weight: 86.18 kg

DRUGS (3)
  1. VERAPAMIL HCL EXTENDED RELEASE TABLETS, USP [Suspect]
     Indication: BLOOD PRESSURE INCREASED
     Route: 048
     Dates: start: 201401
  2. FISH OIL [Concomitant]
     Indication: BLOOD CHOLESTEROL INCREASED
     Route: 048
  3. ASPIRIN [Concomitant]
     Route: 048

REACTIONS (1)
  - Cough [Not Recovered/Not Resolved]
